FAERS Safety Report 24668699 (Version 3)
Quarter: 2025Q1

REPORT INFORMATION
  Report Type: Report from Study
  Country: US (occurrence: US)
  Receive Date: 20241127
  Receipt Date: 20250130
  Transmission Date: 20250409
  Serious: Yes (Other)
  Sender: UCB
  Company Number: US-UCBSA-2024060547

PATIENT
  Age: 6 Year
  Sex: Male
  Weight: 23.7 kg

DRUGS (4)
  1. FINTEPLA [Suspect]
     Active Substance: FENFLURAMINE
     Indication: Lennox-Gastaut syndrome
     Dosage: 2.5 MILLILITER, 2X/DAY (BID)
     Dates: start: 20241125
  2. RUFINAMIDE [Concomitant]
     Active Substance: RUFINAMIDE
     Indication: Seizure
  3. CLOBAZAM [Concomitant]
     Active Substance: CLOBAZAM
     Indication: Seizure
  4. LAMOTRIGINE [Concomitant]
     Active Substance: LAMOTRIGINE
     Indication: Seizure

REACTIONS (1)
  - Behaviour disorder [Recovering/Resolving]

NARRATIVE: CASE EVENT DATE: 20241130
